FAERS Safety Report 25324646 (Version 1)
Quarter: 2025Q2

REPORT INFORMATION
  Report Type: Spontaneous
  Country: US (occurrence: None)
  Receive Date: 20250515
  Receipt Date: 20250515
  Transmission Date: 20250717
  Serious: Yes (Other)
  Sender: FDA-CTU
  Company Number: None

PATIENT
  Age: 72 Year
  Sex: Male
  Weight: 78 kg

DRUGS (2)
  1. WARFARIN [Suspect]
     Active Substance: WARFARIN
  2. RIFAMPIN [Suspect]
     Active Substance: RIFAMPIN

REACTIONS (1)
  - International normalised ratio decreased [None]

NARRATIVE: CASE EVENT DATE: 20250428
